FAERS Safety Report 7365038-3 (Version None)
Quarter: 2011Q1

REPORT INFORMATION
  Report Type: 
  Country: None (occurrence: None)
  Receive Date: 20110321
  Receipt Date: 20110308
  Transmission Date: 20110831
  Serious: Yes (Death, Hospitalization)
  Sender: FDA-Public Use
  Company Number: AU-TEVA-271922ISR

PATIENT
  Sex: Female
  Weight: 47 kg

DRUGS (11)
  1. LENALIDOMIDE [Suspect]
     Indication: MULTIPLE MYELOMA
     Route: 048
     Dates: start: 20100818, end: 20100902
  2. ASPIRIN [Concomitant]
     Indication: THROMBOSIS PROPHYLAXIS
     Route: 048
     Dates: end: 20100825
  3. TELMISARTAN [Concomitant]
     Indication: PRODUCT USED FOR UNKNOWN INDICATION
     Route: 048
  4. LABETALOL HYDROCHLORIDE [Concomitant]
     Indication: HYPERTENSION
     Route: 048
     Dates: end: 20100902
  5. DEXAMETHASONE [Suspect]
     Indication: MULTIPLE MYELOMA
     Dates: start: 20100818, end: 20100901
  6. FELODIPINE [Concomitant]
     Indication: HYPERTENSION
     Route: 048
     Dates: end: 20100902
  7. ASPIRIN [Concomitant]
     Route: 048
     Dates: end: 20100902
  8. ATENOLOL [Concomitant]
     Indication: PRODUCT USED FOR UNKNOWN INDICATION
     Dosage: AT NIGHT
     Route: 048
  9. BENZYDAMINE HYDROCHLORIDE [Concomitant]
     Indication: HERPES VIRUS INFECTION
     Route: 048
     Dates: end: 20100902
  10. POTASSIUM CHLORIDE [Concomitant]
     Indication: ELECTROLYTE SUBSTITUTION THERAPY
     Route: 048
     Dates: end: 20100902
  11. ALLOPURINOL [Concomitant]
     Indication: PRODUCT USED FOR UNKNOWN INDICATION
     Route: 048

REACTIONS (2)
  - PSEUDOMONAL SEPSIS [None]
  - PAIN IN EXTREMITY [None]
